FAERS Safety Report 4910837-8 (Version None)
Quarter: 2006Q1

REPORT INFORMATION
  Report Type: 
  Country: None (occurrence: None)
  Receive Date: 20060214
  Receipt Date: 20051102
  Transmission Date: 20060701
  Serious: Yes (Hospitalization)
  Sender: FDA-Public Use
  Company Number: JP-JPN-A20052658

PATIENT
  Age: 21 Year
  Sex: Male

DRUGS (5)
  1. LEXIVA [Suspect]
     Indication: HIV INFECTION
     Dosage: 1400MG TWICE PER DAY
     Route: 048
     Dates: start: 20050728
  2. VIREAD [Concomitant]
     Dosage: 300MG PER DAY
     Route: 048
  3. EPIVIR [Concomitant]
     Route: 048
  4. STOCRIN [Concomitant]
     Dosage: 600MG PER DAY
     Route: 048
  5. KALETRA [Concomitant]
     Route: 048

REACTIONS (1)
  - CEREBRAL HAEMORRHAGE [None]
